FAERS Safety Report 24675371 (Version 2)
Quarter: 2024Q4

REPORT INFORMATION
  Report Type: Spontaneous
  Country: CA (occurrence: CA)
  Receive Date: 20241128
  Receipt Date: 20241217
  Transmission Date: 20250115
  Serious: No
  Sender: PFIZER
  Company Number: CA-PFIZER INC-202400302435

PATIENT
  Age: 48 Year
  Sex: Female

DRUGS (1)
  1. ABRILADA [Suspect]
     Active Substance: ADALIMUMAB-AFZB
     Indication: Psoriatic arthropathy
     Dosage: EVERY 2 WEEKS
     Route: 058
     Dates: start: 20241030

REACTIONS (3)
  - Agitation [Unknown]
  - Device mechanical issue [Unknown]
  - Device defective [Unknown]
